FAERS Safety Report 4984417-2 (Version None)
Quarter: 2006Q2

REPORT INFORMATION
  Report Type: 
  Country: None (occurrence: None)
  Receive Date: 20060421
  Receipt Date: 20060405
  Transmission Date: 20061013
  Serious: Yes (Other)
  Sender: FDA-Public Use
  Company Number: US-2006-006114

PATIENT
  Age: 43 Year
  Sex: Female
  Weight: 61.2 kg

DRUGS (6)
  1. BETASERON [Suspect]
     Indication: RELAPSING-REMITTING MULTIPLE SCLEROSIS
     Dosage: 8 MIU, EVERY 2D, SUBCUTANEOUS
     Route: 058
     Dates: start: 20040825
  2. TOPAMAX (FUROSEMIDE) [Concomitant]
  3. CLONAZEPAM [Concomitant]
  4. GABAPENTIN [Concomitant]
  5. ZOLOFT [Concomitant]
  6. PREVACID [Concomitant]

REACTIONS (8)
  - ANTIBODY TEST ABNORMAL [None]
  - ASTHMA [None]
  - DRUG DOSE OMISSION [None]
  - INJECTION SITE ERYTHEMA [None]
  - LOSS OF CONSCIOUSNESS [None]
  - NUCLEAR MAGNETIC RESONANCE IMAGING BRAIN ABNORMAL [None]
  - TREATMENT NONCOMPLIANCE [None]
  - WRONG DRUG ADMINISTERED [None]
